FAERS Safety Report 12787173 (Version 2)
Quarter: 2019Q1

REPORT INFORMATION
  Report Type: Report from Study
  Country: ES (occurrence: ES)
  Receive Date: 20160928
  Receipt Date: 20190128
  Transmission Date: 20190417
  Serious: Yes (Hospitalization, Other)
  Sender: FDA-Public Use
  Company Number: ES-BIOGEN-2012BI062492

PATIENT
  Age: 56 Year
  Sex: Female
  Weight: 62 kg

DRUGS (1)
  1. TYSABRI [Suspect]
     Active Substance: NATALIZUMAB
     Indication: MULTIPLE SCLEROSIS
     Route: 042
     Dates: start: 20080311, end: 20121207

REACTIONS (3)
  - Immune reconstitution inflammatory syndrome [Recovered/Resolved]
  - Anaphylactic shock [Unknown]
  - Progressive multifocal leukoencephalopathy [Recovered/Resolved with Sequelae]

NARRATIVE: CASE EVENT DATE: 20121210
